FAERS Safety Report 16255883 (Version 2)
Quarter: 2019Q2

REPORT INFORMATION
  Report Type: Spontaneous
  Country: US (occurrence: US)
  Receive Date: 20190430
  Receipt Date: 20190503
  Transmission Date: 20190711
  Serious: No
  Sender: FDA-Public Use
  Company Number: US-PFIZER INC-2019175381

PATIENT
  Age: 11 Year
  Sex: Female
  Weight: 31.75 kg

DRUGS (2)
  1. MIRALAX [Concomitant]
     Active Substance: POLYETHYLENE GLYCOL 3350
     Dosage: 17 G, UNK
  2. GENOTROPIN [Suspect]
     Active Substance: SOMATROPIN
     Indication: HYPOPITUITARISM
     Dosage: 1.6 MG, UNK (6 DAYS WEEKLY)
     Route: 058
     Dates: start: 201902

REACTIONS (3)
  - Product use in unapproved indication [Unknown]
  - Arthralgia [Unknown]
  - Gait disturbance [Unknown]
